FAERS Safety Report 4380822-6 (Version None)
Quarter: 2004Q2

REPORT INFORMATION
  Report Type: 
  Country: None (occurrence: None)
  Receive Date: 20040616
  Receipt Date: 20040604
  Transmission Date: 20050107
  Serious: Yes (Hospitalization)
  Sender: FDA-Public Use
  Company Number: 237456

PATIENT
  Age: 52 Year
  Sex: Male

DRUGS (6)
  1. INSULATARD HM PENFILL(INSULIN HUMAN) SUSPENSION FOR INJECTION, 100IU/M [Suspect]
     Indication: DIABETES MELLITUS INSULIN-DEPENDENT
     Dosage: 28 IU
  2. SORTIS ^GOEDECKE^ (ATORVASTATIN CALCIUM) [Concomitant]
  3. DILZEM ^ELAN^ (DILTIAZEM HYDROCHLORIDE) [Concomitant]
  4. RENITEN [Concomitant]
  5. ENALAPRIL MALEATE [Concomitant]
  6. ASPIRIN [Concomitant]

REACTIONS (10)
  - BLOOD PRESSURE INADEQUATELY CONTROLLED [None]
  - CONDITION AGGRAVATED [None]
  - DEPRESSED LEVEL OF CONSCIOUSNESS [None]
  - DIABETIC NEPHROPATHY [None]
  - DRUG INTERACTION [None]
  - HYPERTENSION [None]
  - HYPOGLYCAEMIA [None]
  - MEMORY IMPAIRMENT [None]
  - RENAL FAILURE CHRONIC [None]
  - RHABDOMYOLYSIS [None]
